FAERS Safety Report 9935360 (Version 3)
Quarter: 2014Q2

REPORT INFORMATION
  Report Type: Spontaneous
  Country: US (occurrence: US)
  Receive Date: 20140228
  Receipt Date: 20140425
  Transmission Date: 20141212
  Serious: Yes (Death, Other)
  Sender: FDA-Public Use
  Company Number: US-PFIZER INC-2014053054

PATIENT
  Age: 13 Year
  Sex: Male

DRUGS (1)
  1. XALKORI [Suspect]
     Indication: LYMPHOMA
     Dosage: 250 MG, BID
     Route: 048
     Dates: start: 20140206

REACTIONS (5)
  - Off label use [Fatal]
  - Disease progression [Fatal]
  - Lymphoma [Fatal]
  - Electrocardiogram QT prolonged [Unknown]
  - Pneumonia fungal [Unknown]
